FAERS Safety Report 12599500 (Version 2)
Quarter: 2016Q4

REPORT INFORMATION
  Report Type: Spontaneous
  Country: US (occurrence: US)
  Receive Date: 20160727
  Receipt Date: 20161109
  Transmission Date: 20170207
  Serious: No
  Sender: FDA-Public Use
  Company Number: US-PFIZER INC-2016356281

PATIENT
  Age: 64 Year
  Sex: Male

DRUGS (1)
  1. INLYTA [Suspect]
     Active Substance: AXITINIB
     Indication: RENAL CANCER
     Dosage: 3 MG, 2X/DAY (3 TABLETS BY MOUTH TWICE A DAY)
     Route: 048

REACTIONS (8)
  - Pain in extremity [Unknown]
  - Disturbance in attention [Unknown]
  - Renal cancer [Unknown]
  - Back pain [Unknown]
  - Weight decreased [Unknown]
  - Disease progression [Unknown]
  - Diarrhoea [Unknown]
  - Constipation [Unknown]
